FAERS Safety Report 7121105-0 (Version None)
Quarter: 2010Q4

REPORT INFORMATION
  Report Type: 
  Country: None (occurrence: None)
  Receive Date: 20101124
  Receipt Date: 20100329
  Transmission Date: 20110411
  Serious: No
  Sender: FDA-Public Use
  Company Number: US-PFIZER INC-2010040054

PATIENT

DRUGS (4)
  1. TIKOSYN [Suspect]
     Indication: ATRIAL FIBRILLATION
     Dosage: 250, MCG, 2X/DAY
     Route: 048
     Dates: start: 20100110
  2. AMBIEN [Concomitant]
     Dosage: UNK
  3. CELEBREX [Concomitant]
     Dosage: UNK
  4. SINEMET [Concomitant]
     Dosage: UNK

REACTIONS (2)
  - ARRHYTHMIA [None]
  - CIRCUMSTANCE OR INFORMATION CAPABLE OF LEADING TO MEDICATION ERROR [None]
